FAERS Safety Report 12728084 (Version 1)
Quarter: 2016Q3

REPORT INFORMATION
  Report Type: Spontaneous
  Country: US (occurrence: US)
  Receive Date: 20160906
  Receipt Date: 20160906
  Transmission Date: 20161109
  Serious: No
  Sender: FDA-Public Use
  Company Number: None

PATIENT
  Age: 65 Year
  Sex: Female
  Weight: 49.44 kg

DRUGS (5)
  1. LEVETIRACETAM (GENERIC) [Suspect]
     Active Substance: LEVETIRACETAM
     Indication: EPILEPSY
     Dosage: PILL 2X AT BEDTIME, 1X IN MORNING, MOUTH
     Route: 048
  2. KEPPRA [Concomitant]
     Active Substance: LEVETIRACETAM
  3. BIOTIN [Concomitant]
     Active Substance: BIOTIN
  4. TEGRETOL [Concomitant]
     Active Substance: CARBAMAZEPINE
  5. VITAMIN D [Concomitant]
     Active Substance: CHOLECALCIFEROL

REACTIONS (3)
  - Hypoaesthesia [None]
  - Product substitution issue [None]
  - Paraesthesia [None]
